FAERS Safety Report 9239722 (Version 1)
Quarter: 2013Q2

REPORT INFORMATION
  Report Type: Spontaneous
  Country: US (occurrence: US)
  Receive Date: 20130418
  Receipt Date: 20130418
  Transmission Date: 20140414
  Serious: Yes (Other)
  Sender: FDA-Public Use
  Company Number: US-COVIDIEN/TYCO HEALTHCARE/MALLINCKRODT-T201204282

PATIENT
  Age: 38 Year
  Sex: Male
  Weight: 117.91 kg

DRUGS (12)
  1. METHADONE [Suspect]
     Indication: PAIN MANAGEMENT
     Dosage: 10 MG, 5 TABS BID (100MG/DAY)
     Route: 048
     Dates: start: 2005, end: 20121116
  2. ALLOPURINOL [Concomitant]
     Indication: GOUT
     Dosage: UNK
  3. CYCLOBENZAPRINE [Concomitant]
     Indication: MUSCLE RELAXANT THERAPY
     Dosage: UNK
  4. DIAZEPAM [Concomitant]
     Indication: ANXIETY
     Dosage: UNK
  5. FISH OIL [Concomitant]
     Indication: BLOOD CHOLESTEROL INCREASED
     Dosage: UNK
  6. FLUOXETINE [Concomitant]
     Indication: DEPRESSION
     Dosage: UNK
  7. OXYCODONE W/PARACETAMOL [Concomitant]
     Indication: BREAKTHROUGH PAIN
     Dosage: UNK
  8. SILDENAFIL [Concomitant]
     Indication: ERECTILE DYSFUNCTION
     Dosage: UNK
  9. TESTOSTERONE [Concomitant]
     Indication: HORMONE REPLACEMENT THERAPY
     Dosage: UNK
  10. MULTIVITAMIN                       /00831701/ [Concomitant]
     Dosage: UNK
  11. MAGNESIUM                          /00123201/ [Concomitant]
     Indication: BLOOD MAGNESIUM DECREASED
     Dosage: UNK
  12. OMEPRAZOLE [Concomitant]
     Indication: GASTROOESOPHAGEAL REFLUX DISEASE
     Dosage: UNK

REACTIONS (1)
  - Electrocardiogram QT prolonged [Not Recovered/Not Resolved]
